FAERS Safety Report 6789027-2 (Version None)
Quarter: 2010Q2

REPORT INFORMATION
  Report Type: 
  Country: None (occurrence: None)
  Receive Date: 20100623
  Receipt Date: 20080618
  Transmission Date: 20101027
  Serious: No
  Sender: FDA-Public Use
  Company Number: US-PFIZER INC-2008051197

PATIENT

DRUGS (1)
  1. GEODON [Suspect]

REACTIONS (1)
  - SOMNOLENCE [None]
